FAERS Safety Report 6587935-9 (Version None)
Quarter: 2010Q1

REPORT INFORMATION
  Report Type: 
  Country: None (occurrence: None)
  Receive Date: 20100201
  Receipt Date: 20090316
  Transmission Date: 20100710
  Serious: Yes (Other)
  Sender: FDA-Public Use
  Company Number: 622828

PATIENT
  Age: 51 Year
  Sex: Male
  Weight: 103.4 kg

DRUGS (2)
  1. RIBAVIRIN [Suspect]
     Indication: HEPATITIS C
     Dosage: 400 MG 2 PER DAY ORAL
     Route: 048
  2. PEG-INTRON [Suspect]
     Indication: HEPATITIS C
     Dosage: 0.015 MG 1 PER WEEK SUBCUTANEOUS
     Route: 058

REACTIONS (3)
  - DEAFNESS NEUROSENSORY [None]
  - HEPATIC STEATOSIS [None]
  - HEPATITIS C [None]
